FAERS Safety Report 7401707-4 (Version None)
Quarter: 2011Q1

REPORT INFORMATION
  Report Type: 
  Country: None (occurrence: None)
  Receive Date: 20110329
  Receipt Date: 20110315
  Transmission Date: 20110831
  Serious: Yes (Hospitalization)
  Sender: FDA-Public Use
  Company Number: DAV-AE-AMO-11-005

PATIENT
  Age: 40 Year
  Sex: Male

DRUGS (1)
  1. AMOXICILLIN [Suspect]
     Indication: PHARYNGITIS
     Dosage: ORAL
     Route: 048

REACTIONS (3)
  - PEMPHIGUS [None]
  - RESPIRATORY TRACT INFECTION [None]
  - PRODUCT QUALITY ISSUE [None]
